FAERS Safety Report 8050408-0 (Version None)
Quarter: 2012Q1

REPORT INFORMATION
  Report Type: 
  Country: None (occurrence: None)
  Receive Date: 20120111
  Receipt Date: 20110509
  Transmission Date: 20120608
  Serious: Yes (Other)
  Sender: FDA-Public Use
  Company Number: 2011-02697

PATIENT
  Age: 2 Year
  Sex: Male

DRUGS (1)
  1. TUBERSOL 5 TU (TUBERCULIN PPD (M) 5 TU) , SANOFI PASTEUR LTD., LOT NOT [Suspect]
     Indication: TUBERCULIN TEST
     Dosage: I.D.,FOREARM L
     Dates: start: 20000801, end: 20090601

REACTIONS (2)
  - INJECTION SITE INDURATION [None]
  - LATENT TUBERCULOSIS [None]
